FAERS Safety Report 18142275 (Version 8)
Quarter: 2021Q3

REPORT INFORMATION
  Report Type: Report from Study
  Country: DE (occurrence: DE)
  Receive Date: 20200812
  Receipt Date: 20210811
  Transmission Date: 20211014
  Serious: Yes (Other)
  Sender: FDA-Public Use
  Company Number: DE-MYLANLABS-2020M1071109

PATIENT
  Age: 38 Year
  Sex: Female

DRUGS (6)
  1. ANASTROZOLE. [Suspect]
     Active Substance: ANASTROZOLE
     Indication: BREAST CANCER METASTATIC
     Dosage: 1 MILLIGRAM, QD (1 MG, QD)
     Route: 048
     Dates: start: 20200702
  2. KISQALI [Suspect]
     Active Substance: RIBOCICLIB
     Dosage: 600 MILLIGRAM, QD (DAILY DOSE) (SCHEMA 21 DAYS INTAKE, 7 DAYS PAUSE)
     Route: 048
     Dates: start: 20201130
  3. KISQALI [Suspect]
     Active Substance: RIBOCICLIB
     Dosage: 600 MILLIGRAM, QD (DAILY DOSE)  (SCHEMA 21 DAYS INTAKE, 7 DAYS PAUSE)
     Route: 048
     Dates: start: 20201013, end: 20201130
  4. KISQALI [Suspect]
     Active Substance: RIBOCICLIB
     Indication: BREAST CANCER METASTATIC
     Dosage: 600 MILLIGRAM, QD (SCHEME 21 DAYS INTAKE, 7 DAYS PAUSE)
     Route: 048
     Dates: start: 20200702, end: 20200722
  5. KISQALI [Suspect]
     Active Substance: RIBOCICLIB
     Dosage: 600 MILLIGRAM, QD (DAILY DOSE) SCHEME 21 DAYS INTAKE, 7 DAYS PAUSE
     Route: 048
     Dates: start: 20200915, end: 20201005
  6. KISQALI [Suspect]
     Active Substance: RIBOCICLIB
     Dosage: 600 MILLIGRAM, QD (DAILY DOSE) SCHEME 21 DAYS INTAKE, 7 DAYS PAUSE
     Route: 048
     Dates: start: 20200811, end: 20200831

REACTIONS (12)
  - Insomnia [Recovered/Resolved]
  - Hot flush [Not Recovered/Not Resolved]
  - Arthralgia [Recovered/Resolved]
  - Back pain [Recovered/Resolved]
  - Nausea [Recovered/Resolved]
  - Dry skin [Recovered/Resolved]
  - Headache [Not Recovered/Not Resolved]
  - Palpitations [Recovered/Resolved]
  - Fatigue [Not Recovered/Not Resolved]
  - Neutropenia [Recovering/Resolving]
  - Dyspnoea [Not Recovered/Not Resolved]
  - Bone pain [Recovered/Resolved]

NARRATIVE: CASE EVENT DATE: 20200704
